FAERS Safety Report 6285287-5 (Version None)
Quarter: 2009Q3

REPORT INFORMATION
  Report Type: 
  Country: None (occurrence: None)
  Receive Date: 20090727
  Receipt Date: 20090715
  Transmission Date: 20100115
  Serious: Yes (Other)
  Sender: FDA-Public Use
  Company Number: FR-JNJFOC-20090707949

PATIENT
  Age: 14 Year
  Sex: Male

DRUGS (1)
  1. TOPALGIC [Suspect]
     Indication: ARTHRALGIA
     Route: 048

REACTIONS (3)
  - GRAND MAL CONVULSION [None]
  - LOSS OF CONSCIOUSNESS [None]
  - VOMITING [None]
